FAERS Safety Report 9384567 (Version 1)
Quarter: 2013Q3

REPORT INFORMATION
  Report Type: Spontaneous
  Country: US (occurrence: US)
  Receive Date: 20130705
  Receipt Date: 20130705
  Transmission Date: 20140515
  Serious: No
  Sender: FDA-Public Use
  Company Number: US-BAYER-2013-081634

PATIENT
  Sex: Female
  Weight: 56.69 kg

DRUGS (2)
  1. BETASERON [Suspect]
     Dosage: 0.3 MG, QOD
     Route: 058
  2. LISINOPRIL W/HYDROCHLOROTHIAZIDE [Concomitant]
     Dosage: 10-12.5

REACTIONS (2)
  - Injection site calcification [Unknown]
  - Drug ineffective [Unknown]
